FAERS Safety Report 24563206 (Version 1)
Quarter: 2024Q4

REPORT INFORMATION
  Report Type: Spontaneous
  Country: US (occurrence: US)
  Receive Date: 20241030
  Receipt Date: 20241030
  Transmission Date: 20250115
  Serious: No
  Sender: EXELA PHARMA SCIENCES
  Company Number: US-EXELAPHARMA-2024EXLA00031

PATIENT

DRUGS (1)
  1. AKOVAZ [Suspect]
     Active Substance: EPHEDRINE SULFATE
     Indication: Product used for unknown indication

REACTIONS (1)
  - No adverse event [Unknown]
